FAERS Safety Report 10009723 (Version 2)
Quarter: 2014Q2

REPORT INFORMATION
  Report Type: Report from Study
  Country: JP (occurrence: JP)
  Receive Date: 20140313
  Receipt Date: 20140505
  Transmission Date: 20141212
  Serious: No
  Sender: FDA-Public Use
  Company Number: JP-B.I. PHARMACEUTICALS,INC./RIDGEFIELD-2014-BI-10189NB

PATIENT
  Age: 88 Year
  Sex: Male
  Weight: 64 kg

DRUGS (8)
  1. PRADAXA [Suspect]
     Indication: CEREBROVASCULAR ACCIDENT PROPHYLAXIS
     Dosage: 220 MG
     Route: 048
     Dates: start: 20130723, end: 20140218
  2. ARTIST / CARVEDILOL [Concomitant]
     Indication: PROPHYLAXIS
     Dosage: 2.5 MG
     Route: 048
  3. PLETAAL OD / CILOSTAZOL [Concomitant]
     Indication: PROPHYLAXIS
     Dosage: 100 MG
     Route: 048
  4. PERSANTIN-L / DIPYRIDAMOLE [Concomitant]
     Indication: PROPHYLAXIS
     Dosage: 150 MG
     Route: 048
  5. EXFORGE / VALSARTAN_AMLODIPINE BESILATE COMBINED DRUG [Concomitant]
     Indication: PROPHYLAXIS
     Dosage: /1 TIME/1 DAY
     Route: 048
  6. GASTER D / FAMOTIDINE [Concomitant]
     Indication: PROPHYLAXIS
     Dosage: 20 MG
     Route: 048
  7. HEAVY MAGNESIUM OXIDE /MAGNESIUM OXIDE [Concomitant]
     Indication: PROPHYLAXIS
     Dosage: 1 G
     Route: 048
  8. WARFARIN / WARFARIN POTASSIUM [Concomitant]
     Dosage: 3.25 MG
     Route: 048
     Dates: start: 20030430, end: 20130723

REACTIONS (2)
  - Lower gastrointestinal haemorrhage [Recovered/Resolved]
  - Large intestine polyp [Recovered/Resolved]
